FAERS Safety Report 19801122 (Version 2)
Quarter: 2021Q3

REPORT INFORMATION
  Report Type: Spontaneous
  Country: US (occurrence: US)
  Receive Date: 20210907
  Receipt Date: 20210909
  Transmission Date: 20211014
  Serious: Yes (Hospitalization, Other)
  Sender: FDA-Public Use
  Company Number: US-FERRINGPH-2021FE05646

PATIENT
  Age: 44 Year
  Sex: Male

DRUGS (2)
  1. SOMATROPIN. [Suspect]
     Active Substance: SOMATROPIN
     Indication: MUSCLE BUILDING THERAPY
     Dosage: MORE THAN A YEAR
     Route: 065
  2. TESTOSTERONE BOOSTERS [Concomitant]
     Active Substance: TESTOSTERONE
     Indication: MUSCLE BUILDING THERAPY
     Dosage: MORE THAN A YEAR
     Route: 065

REACTIONS (3)
  - Product use issue [Unknown]
  - Drug abuse [Unknown]
  - Phaeochromocytoma [Unknown]
